FAERS Safety Report 16077851 (Version 2)
Quarter: 2019Q2

REPORT INFORMATION
  Report Type: Spontaneous
  Country: SE (occurrence: SE)
  Receive Date: 20190315
  Receipt Date: 20190401
  Transmission Date: 20190711
  Serious: Yes (Other)
  Sender: FDA-Public Use
  Company Number: SE-SA-2019SA033799

PATIENT
  Age: 28 Year
  Sex: Male

DRUGS (3)
  1. BETAPRED [Concomitant]
     Active Substance: BETAMETHASONE SODIUM PHOSPHATE
     Dosage: UNK
  2. DUPIXENT [Suspect]
     Active Substance: DUPILUMAB
     Indication: PRODUCT USED FOR UNKNOWN INDICATION
     Dosage: 2 DF
     Route: 058
  3. CICLOSPORIN [Concomitant]
     Active Substance: CYCLOSPORINE
     Dosage: UNK

REACTIONS (15)
  - Skin laceration [Recovering/Resolving]
  - Chills [Unknown]
  - Dermatitis exfoliative generalised [Unknown]
  - Skin exfoliation [Recovering/Resolving]
  - Alopecia [Unknown]
  - Condition aggravated [Recovering/Resolving]
  - Pain [Unknown]
  - Erythema [Recovering/Resolving]
  - Swelling [Unknown]
  - Sleep disorder [Unknown]
  - Skin disorder [Recovering/Resolving]
  - Malaise [Unknown]
  - Pruritus [Unknown]
  - Generalised erythema [Unknown]
  - Conjunctivitis [Unknown]
